FAERS Safety Report 25954353 (Version 2)
Quarter: 2025Q4

REPORT INFORMATION
  Report Type: Report from Study
  Country: EU (occurrence: EU)
  Receive Date: 20251023
  Receipt Date: 20251104
  Transmission Date: 20260117
  Serious: Yes (Other)
  Sender: ABBVIE
  Company Number: EU-ABBVIE-6514368

PATIENT
  Age: 82 Year
  Sex: Female

DRUGS (2)
  1. FOSCARBIDOPA\FOSLEVODOPA [Suspect]
     Active Substance: FOSCARBIDOPA\FOSLEVODOPA
     Indication: Parkinson^s disease
     Dosage: CR 0.41 ML/H; CR HIGH 0.43 ML/H; CR LOW 0.20 ML/H; ED 0.25 ML
     Route: 058
     Dates: start: 20251007
  2. TRAZODONE HYDROCHLORIDE [Concomitant]
     Active Substance: TRAZODONE HYDROCHLORIDE
     Indication: Product used for unknown indication
     Dosage: EVENING OR AT BEDTIME

REACTIONS (12)
  - Pelvic fracture [Not Recovered/Not Resolved]
  - Fall [Not Recovered/Not Resolved]
  - Mobility decreased [Unknown]
  - Osteoarthritis [Not Recovered/Not Resolved]
  - Skin abrasion [Unknown]
  - Immobile [Unknown]
  - Osteosclerosis [Unknown]
  - Diverticulum intestinal [Unknown]
  - Joint range of motion decreased [Unknown]
  - Groin pain [Unknown]
  - Pain [Unknown]
  - Arthralgia [Unknown]

NARRATIVE: CASE EVENT DATE: 20250101
